FAERS Safety Report 7308764-4 (Version None)
Quarter: 2011Q1

REPORT INFORMATION
  Report Type: 
  Country: None (occurrence: None)
  Receive Date: 20110211
  Receipt Date: 20110126
  Transmission Date: 20110831
  Serious: Yes (Death)
  Sender: FDA-Public Use
  Company Number: 1000018599

PATIENT
  Age: 87 Year
  Sex: Female

DRUGS (2)
  1. MEMANTINE [Suspect]
     Indication: DEMENTIA ALZHEIMER'S TYPE
     Dosage: UPTITRATED FROM 5 TO 10 MG ONCE DAILY (1 IN 1 D),ORAL
     Route: 048
     Dates: start: 20100306
  2. RISPERDAL [Concomitant]

REACTIONS (1)
  - DEATH [None]
